FAERS Safety Report 18228483 (Version 1)
Quarter: 2020Q3

REPORT INFORMATION
  Report Type: Spontaneous
  Country: US (occurrence: US)
  Receive Date: 20200903
  Receipt Date: 20200903
  Transmission Date: 20201103
  Serious: No
  Sender: FDA-Public Use
  Company Number: US-MYLANLABS-2020M1073146

PATIENT
  Age: 60 Year
  Sex: Male
  Weight: 87 kg

DRUGS (3)
  1. ALBUTEROL                          /00139501/ [Concomitant]
     Active Substance: ALBUTEROL
     Dosage: UNK
  2. WIXELA INHUB [Suspect]
     Active Substance: FLUTICASONE PROPIONATE\SALMETEROL XINAFOATE
     Indication: ASTHMA
     Dosage: 250/50 MCG, 2?3 TIMES A WEEK
     Route: 048
  3. WIXELA INHUB [Suspect]
     Active Substance: FLUTICASONE PROPIONATE\SALMETEROL XINAFOATE
     Indication: CHEST DISCOMFORT

REACTIONS (3)
  - Device issue [Not Recovered/Not Resolved]
  - Lip injury [Not Recovered/Not Resolved]
  - Device use issue [Not Recovered/Not Resolved]

NARRATIVE: CASE EVENT DATE: 20200819
